FAERS Safety Report 7375946-5 (Version None)
Quarter: 2011Q1

REPORT INFORMATION
  Report Type: 
  Country: None (occurrence: None)
  Receive Date: 20110325
  Receipt Date: 20110310
  Transmission Date: 20110831
  Serious: Yes (Hospitalization)
  Sender: FDA-Public Use
  Company Number: IE-MEDIMMUNE-MEDI-0012073

PATIENT
  Sex: Female
  Weight: 1.4 kg

DRUGS (4)
  1. SYNAGIS [Suspect]
     Route: 030
     Dates: start: 20101005, end: 20101005
  2. KAPSOVIT [Concomitant]
  3. RANITIDINE HYDROCHLORIDE [Concomitant]
  4. FERROUS SULFATE TAB [Concomitant]

REACTIONS (4)
  - APNOEA [None]
  - MENINGITIS PNEUMOCOCCAL [None]
  - PYREXIA [None]
  - LETHARGY [None]
